FAERS Safety Report 9113253 (Version 2)
Quarter: 2013Q1

REPORT INFORMATION
  Report Type: Spontaneous
  Country: FR (occurrence: FR)
  Receive Date: 20130211
  Receipt Date: 20130225
  Transmission Date: 20140127
  Serious: Yes (Hospitalization)
  Sender: FDA-Public Use
  Company Number: FR-BRISTOL-MYERS SQUIBB COMPANY-17365248

PATIENT
  Age: 63 Year
  Sex: Female
  Weight: 67 kg

DRUGS (5)
  1. LYSODREN [Suspect]
     Indication: ADRENOCORTICAL CARCINOMA
     Dates: start: 201203, end: 20121110
  2. HYDROCORTISONE [Concomitant]
     Dates: start: 201203
  3. LEVOTHYROX [Concomitant]
  4. INEXIUM [Concomitant]
  5. COTAREG [Concomitant]

REACTIONS (4)
  - Psychiatric decompensation [Recovering/Resolving]
  - Delusional disorder, unspecified type [Recovering/Resolving]
  - Psychotic disorder [Recovering/Resolving]
  - Abnormal behaviour [Recovering/Resolving]
